FAERS Safety Report 13321938 (Version 4)
Quarter: 2017Q1

REPORT INFORMATION
  Report Type: Spontaneous
  Country: IT (occurrence: IT)
  Receive Date: 20170310
  Receipt Date: 20170322
  Transmission Date: 20170428
  Serious: Yes (Death, Other)
  Sender: FDA-Public Use
  Company Number: IT-PFIZER INC-2841127

PATIENT
  Age: 63 Year
  Sex: Female
  Weight: 72 kg

DRUGS (7)
  1. LUCEN [Concomitant]
     Active Substance: ESOMEPRAZOLE
     Route: 048
  2. DOCETAXEL HOSPIRA [Suspect]
     Active Substance: DOCETAXEL
     Indication: BREAST CANCER
     Dosage: 75 MG/M2, CYCLIC
     Route: 042
     Dates: start: 20150401, end: 20150401
  3. CYCLOPHOSPHAMIDE. [Concomitant]
     Active Substance: CYCLOPHOSPHAMIDE
     Indication: BREAST CANCER
     Dosage: 600 MG/M2, UNK
     Route: 041
     Dates: start: 20150401, end: 20150401
  4. OLPRESS [Concomitant]
     Active Substance: OLMESARTAN MEDOXOMIL
     Dosage: 10 MG, UNK
     Route: 048
  5. ONDANSETRONE ACCORD HEALTHCARE [Concomitant]
     Indication: BREAST CANCER
     Dosage: 8 MG, UNK
     Route: 042
     Dates: start: 20150401, end: 20150401
  6. DESAMETASONE FOSFATO HOSPIRA [Concomitant]
     Indication: BREAST CANCER
     Dosage: 12 MG, UNK
     Route: 042
     Dates: start: 20150401, end: 20150401
  7. LETROZOLE. [Concomitant]
     Active Substance: LETROZOLE
     Dosage: 2.5 MG, UNK
     Route: 048
     Dates: start: 20150401

REACTIONS (5)
  - Neutropenic colitis [Fatal]
  - Pyrexia [Fatal]
  - Abdominal pain [Fatal]
  - Retroperitoneal haematoma [Unknown]
  - Vomiting [Fatal]

NARRATIVE: CASE EVENT DATE: 20150410
